FAERS Safety Report 17201902 (Version 1)
Quarter: 2020Q1

REPORT INFORMATION
  Report Type: Spontaneous
  Country: US (occurrence: US)
  Receive Date: 20191225
  Receipt Date: 20191225
  Transmission Date: 20200409
  Serious: Yes (Hospitalization)
  Sender: FDA-Public Use
  Company Number: None

PATIENT
  Age: 31 Month
  Sex: Male
  Weight: 12.7 kg

DRUGS (2)
  1. VITAMINS (BABY PLEX) [Concomitant]
  2. OSELTAMIVIR PHOSPHATE. [Suspect]
     Active Substance: OSELTAMIVIR PHOSPHATE
     Indication: INFLUENZA LIKE ILLNESS
     Dosage: ?          QUANTITY:6 DROP(S);?
     Route: 048
     Dates: start: 20191220, end: 20191221

REACTIONS (1)
  - Haematemesis [None]

NARRATIVE: CASE EVENT DATE: 20191221
